FAERS Safety Report 24605043 (Version 1)
Quarter: 2024Q4

REPORT INFORMATION
  Report Type: Spontaneous
  Country: US (occurrence: US)
  Receive Date: 20241111
  Receipt Date: 20241111
  Transmission Date: 20250115
  Serious: No
  Sender: ALEXION PHARMACEUTICALS
  Company Number: US-AstraZeneca-CH-00743318A

PATIENT
  Weight: 50 kg

DRUGS (4)
  1. STRENSIQ [Suspect]
     Active Substance: ASFOTASE ALFA
     Indication: Hypophosphatasia
  2. STRENSIQ [Suspect]
     Active Substance: ASFOTASE ALFA
  3. STRENSIQ [Suspect]
     Active Substance: ASFOTASE ALFA
  4. STRENSIQ [Suspect]
     Active Substance: ASFOTASE ALFA

REACTIONS (1)
  - Injection site pain [Recovered/Resolved]
